FAERS Safety Report 26198584 (Version 1)
Quarter: 2025Q4

REPORT INFORMATION
  Report Type: Report from Study
  Country: CA (occurrence: CA)
  Receive Date: 20251224
  Receipt Date: 20251224
  Transmission Date: 20260117
  Serious: Yes (Other)
  Sender: ABBVIE
  Company Number: CA-ABBVIE-6604513

PATIENT
  Sex: Male

DRUGS (1)
  1. HUMIRA [Suspect]
     Active Substance: ADALIMUMAB
     Indication: Uveitis
     Dosage: SOLUTION FOR INJECTION IN PRE-FILLED PEN
     Route: 058

REACTIONS (2)
  - Macular oedema [Not Recovered/Not Resolved]
  - Drug ineffective [Not Recovered/Not Resolved]
